FAERS Safety Report 18542467 (Version 1)
Quarter: 2020Q4

REPORT INFORMATION
  Report Type: Spontaneous
  Country: US (occurrence: US)
  Receive Date: 20201125
  Receipt Date: 20201125
  Transmission Date: 20210114
  Serious: Yes (Other)
  Sender: FDA-Public Use
  Company Number: US-ROCHE-2720023

PATIENT
  Sex: Male

DRUGS (1)
  1. ESBRIET [Suspect]
     Active Substance: PIRFENIDONE
     Indication: IDIOPATHIC PULMONARY FIBROSIS
     Route: 048
     Dates: start: 20201111

REACTIONS (5)
  - Rash [Not Recovered/Not Resolved]
  - Staphylococcal infection [Recovering/Resolving]
  - Off label use [Unknown]
  - Intentional product misuse [Unknown]
  - Furuncle [Recovering/Resolving]

NARRATIVE: CASE EVENT DATE: 20201117
